FAERS Safety Report 5669922-8 (Version None)
Quarter: 2008Q1

REPORT INFORMATION
  Report Type: 
  Country: None (occurrence: None)
  Receive Date: 20080317
  Receipt Date: 20080305
  Transmission Date: 20080703
  Serious: Yes (Hospitalization)
  Sender: FDA-Public Use
  Company Number: JP-PFIZER INC-2008021388

PATIENT
  Age: 50 Year
  Sex: Female

DRUGS (2)
  1. GABAPEN [Suspect]
     Indication: PAIN
     Dosage: DAILY DOSE:1200MG
     Route: 048
     Dates: start: 20080220, end: 20080229
  2. LANDSEN [Concomitant]
     Route: 048

REACTIONS (1)
  - CHEST DISCOMFORT [None]
